FAERS Safety Report 8756597 (Version 2)
Quarter: 2013Q1

REPORT INFORMATION
  Report Type: Spontaneous
  Country: US (occurrence: US)
  Receive Date: 20120828
  Receipt Date: 20130115
  Transmission Date: 20140127
  Serious: No
  Sender: FDA-Public Use
  Company Number: US-009507513-1208USA009655

PATIENT
  Age: 47 None
  Sex: Female

DRUGS (8)
  1. PEGINTRON [Suspect]
     Indication: CHRONIC HEPATITIS
     Dosage: 120 MICROGRAM, QW
     Route: 059
     Dates: start: 20120522
  2. RIBASPHERE [Suspect]
     Dosage: 200 MG, BID, EVERY MORNING AND EVENING
     Dates: start: 2012
  3. RIBASPHERE [Suspect]
     Dosage: UNK
  4. TELAPREVIR [Suspect]
  5. CITALOPRAM [Concomitant]
  6. LEVOTHYROXINE SODIUM [Concomitant]
  7. ADVIL [Concomitant]
  8. CLONAZEPAM [Concomitant]
     Dosage: 0.5 MG
     Dates: start: 201208

REACTIONS (4)
  - Full blood count decreased [Unknown]
  - Vision blurred [Unknown]
  - Dizziness [Unknown]
  - Anxiety [Unknown]
